FAERS Safety Report 10659441 (Version 2)
Quarter: 2014Q4

REPORT INFORMATION
  Report Type: Spontaneous
  Country: JP (occurrence: JP)
  Receive Date: 20141217
  Receipt Date: 20141229
  Transmission Date: 20150529
  Serious: Yes (Hospitalization)
  Sender: FDA-Public Use
  Company Number: JP-NOVOPROD-430811

PATIENT
  Age: 47 Year
  Sex: Female
  Weight: 59 kg

DRUGS (7)
  1. HUMALOG [Suspect]
     Active Substance: INSULIN LISPRO
     Indication: PANCREATOGENOUS DIABETES
     Dosage: 16 - 41 IU
     Route: 058
     Dates: start: 20130726, end: 20130729
  2. NOVORAPID [Suspect]
     Active Substance: INSULIN ASPART
     Indication: PANCREATOGENOUS DIABETES
     Dosage: 41 IU, QD
     Route: 058
     Dates: start: 20130730, end: 20130730
  3. LANTUS [Suspect]
     Active Substance: INSULIN GLARGINE
     Indication: PANCREATOGENOUS DIABETES
     Dosage: 4 - 12 IU
     Route: 058
     Dates: start: 20130726, end: 20130812
  4. NOVORAPID [Suspect]
     Active Substance: INSULIN ASPART
     Dosage: 16 IU, QD
     Route: 058
     Dates: start: 20130321
  5. NOVORAPID [Suspect]
     Active Substance: INSULIN ASPART
     Dosage: 19 IU, QD, (6-7-6IU)
     Route: 058
     Dates: start: 20130620
  6. NOVORAPID [Suspect]
     Active Substance: INSULIN ASPART
     Indication: PANCREATOGENOUS DIABETES
     Dosage: 14 IU, QD
     Route: 058
     Dates: start: 20120913
  7. NOVORAPID [Suspect]
     Active Substance: INSULIN ASPART
     Dosage: 19 IU, QD
     Route: 058
     Dates: end: 20130726

REACTIONS (3)
  - Anti-insulin antibody positive [Unknown]
  - Drug hypersensitivity [Recovering/Resolving]
  - Ketosis [Recovered/Resolved]

NARRATIVE: CASE EVENT DATE: 20130725
